FAERS Safety Report 4464049-5 (Version None)
Quarter: 2004Q3

REPORT INFORMATION
  Report Type: 
  Country: None (occurrence: None)
  Receive Date: 20040928
  Receipt Date: 20040928
  Transmission Date: 20050211
  Serious: Yes (Death)
  Sender: FDA-Public Use
  Company Number: None

PATIENT
  Sex: Female
  Weight: 98 kg

DRUGS (10)
  1. FLUDARABINE PHOSPHATE [Suspect]
     Dosage: 66 MG IV DAILY
     Route: 042
     Dates: start: 20040917, end: 20040918
  2. CAMPATH [Suspect]
     Indication: STEM CELL TRANSPLANT
     Dosage: 20 MG IV DAILY
     Route: 042
     Dates: start: 20040917
  3. PREDNISONE [Concomitant]
  4. ACYCLOVIR [Concomitant]
  5. GATIFLOXACIN [Concomitant]
  6. VORICONAZOLE [Concomitant]
  7. BACTRIM [Concomitant]
  8. PREVACID [Concomitant]
  9. PLAQUENIL [Concomitant]
  10. IMEPENEM [Concomitant]

REACTIONS (3)
  - BACTERIAL SEPSIS [None]
  - DYSPNOEA [None]
  - MULTI-ORGAN FAILURE [None]
